FAERS Safety Report 16332573 (Version 1)
Quarter: 2019Q2

REPORT INFORMATION
  Report Type: Spontaneous
  Country: US (occurrence: US)
  Receive Date: 20190520
  Receipt Date: 20190520
  Transmission Date: 20190711
  Serious: Yes (Other)
  Sender: FDA-Public Use
  Company Number: US-BRACCO-2019US02394

PATIENT
  Sex: Male

DRUGS (1)
  1. MULTIHANCE [Suspect]
     Active Substance: GADOBENATE DIMEGLUMINE
     Indication: NUCLEAR MAGNETIC RESONANCE IMAGING
     Dosage: UNK, SINGLE
     Route: 042
     Dates: start: 20170329, end: 20170329

REACTIONS (7)
  - Contrast media deposition [Unknown]
  - Anxiety [Unknown]
  - Injury [Unknown]
  - Fibrosis [Unknown]
  - Pain [Unknown]
  - Emotional distress [Unknown]
  - Skin fibrosis [Unknown]
